FAERS Safety Report 16034809 (Version 1)
Quarter: 2019Q1

REPORT INFORMATION
  Report Type: Spontaneous
  Country: US (occurrence: US)
  Receive Date: 20190205
  Receipt Date: 20190205
  Transmission Date: 20190418
  Serious: No
  Sender: FDA-Public Use
  Company Number: None

PATIENT
  Age: 26 Year
  Sex: Female

DRUGS (1)
  1. HYDROXYPROGESTERONE CAPROATE (NDC 66993-038-83) [Suspect]
     Active Substance: HYDROXYPROGESTERONE CAPROATE
     Dates: start: 201901

REACTIONS (3)
  - Injection site pruritus [None]
  - Injection site reaction [None]
  - Skin disorder [None]

NARRATIVE: CASE EVENT DATE: 20190204
